FAERS Safety Report 8023447-3 (Version None)
Quarter: 2012Q1

REPORT INFORMATION
  Report Type: 
  Country: None (occurrence: None)
  Receive Date: 20120105
  Receipt Date: 20111229
  Transmission Date: 20120608
  Serious: Yes (Hospitalization)
  Sender: FDA-Public Use
  Company Number: US-BIOGENIDEC-2011BI048936

PATIENT
  Age: 42 Year
  Sex: Male

DRUGS (3)
  1. TYSABRI [Suspect]
     Route: 042
     Dates: start: 20110816, end: 20110816
  2. TYSABRI [Suspect]
     Indication: MULTIPLE SCLEROSIS
     Route: 042
     Dates: start: 20111130
  3. TYSABRI [Suspect]
     Route: 042
     Dates: start: 20080211, end: 20110209

REACTIONS (3)
  - SPEECH DISORDER [None]
  - ABNORMAL BEHAVIOUR [None]
  - HYPOAESTHESIA [None]
